FAERS Safety Report 12092045 (Version 1)
Quarter: 2016Q1

REPORT INFORMATION
  Report Type: Other
  Country: US (occurrence: US)
  Receive Date: 20160219
  Receipt Date: 20160219
  Transmission Date: 20160526
  Serious: No
  Sender: FDA-Public Use
  Company Number: US-ACORDA-ACO_106515_2014

PATIENT
  Sex: Female

DRUGS (4)
  1. AMPYRA [Suspect]
     Active Substance: DALFAMPRIDINE
     Indication: FATIGUE
  2. AMPYRA [Suspect]
     Active Substance: DALFAMPRIDINE
     Indication: ASTHENIA
  3. AMPYRA [Suspect]
     Active Substance: DALFAMPRIDINE
     Indication: MULTIPLE SCLEROSIS
     Dosage: 10 MG, Q 12 HRS
     Route: 048
     Dates: start: 20140816
  4. AMPYRA [Suspect]
     Active Substance: DALFAMPRIDINE
     Indication: DIZZINESS

REACTIONS (1)
  - Therapeutic response unexpected [Unknown]
